FAERS Safety Report 6559443-2 (Version None)
Quarter: 2010Q1

REPORT INFORMATION
  Report Type: 
  Country: None (occurrence: None)
  Receive Date: 20100129
  Receipt Date: 20090908
  Transmission Date: 20100710
  Serious: No
  Sender: FDA-Public Use
  Company Number: US-ABBOTT-09P-163-0595878-00

PATIENT
  Sex: Female

DRUGS (5)
  1. HUMIRA [Suspect]
     Indication: RHEUMATOID ARTHRITIS
     Dates: start: 20070917
  2. UNKNOWN MEDICATION [Concomitant]
     Indication: BLOOD PRESSURE
  3. UNKNOWN MEDICATION [Concomitant]
     Indication: GLAUCOMA
  4. UNKNOWN MEDICATION [Concomitant]
     Indication: ULCER
  5. UNKNOWN MEDICATION [Concomitant]
     Indication: SINUS DISORDER

REACTIONS (3)
  - BREAST PAIN [None]
  - CYST [None]
  - PRURITUS [None]
